FAERS Safety Report 15386480 (Version 1)
Quarter: 2018Q3

REPORT INFORMATION
  Report Type: Spontaneous
  Country: US (occurrence: US)
  Receive Date: 20180914
  Receipt Date: 20180914
  Transmission Date: 20181010
  Serious: No
  Sender: FDA-Public Use
  Company Number: US-SHIRE-US201835388

PATIENT
  Age: 61 Year
  Sex: Female
  Weight: 163 kg

DRUGS (1)
  1. HYQVIA [Suspect]
     Active Substance: HUMAN IMMUNOGLOBULIN G\HYALURONIDASE RECOMBINANT HUMAN
     Indication: IMMUNODEFICIENCY COMMON VARIABLE
     Dosage: UNK, 1X/WEEK 10?30 GRAM
     Route: 058
     Dates: start: 20180830

REACTIONS (5)
  - Nausea [Not Recovered/Not Resolved]
  - Headache [Not Recovered/Not Resolved]
  - Visual impairment [Unknown]
  - Pyrexia [Unknown]
  - Balance disorder [Unknown]

NARRATIVE: CASE EVENT DATE: 20180906
